FAERS Safety Report 5668383-2 (Version None)
Quarter: 2008Q1

REPORT INFORMATION
  Report Type: 
  Country: None (occurrence: None)
  Receive Date: 20080315
  Receipt Date: 20080225
  Transmission Date: 20080703
  Serious: No
  Sender: FDA-Public Use
  Company Number: US-ABBOTT-08P-163-0439707-00

PATIENT
  Sex: Male
  Weight: 74.91 kg

DRUGS (5)
  1. HUMIRA [Suspect]
     Indication: ANKYLOSING SPONDYLITIS
     Route: 058
     Dates: start: 20071103, end: 20071103
  2. HUMIRA [Suspect]
     Indication: CROHN'S DISEASE
     Route: 058
  3. HUMIRA [Suspect]
     Route: 058
  4. INFLIXIMAB [Concomitant]
     Indication: ANKYLOSING SPONDYLITIS
     Route: 042
  5. INFLIXIMAB [Concomitant]
     Indication: CROHN'S DISEASE

REACTIONS (2)
  - BACK PAIN [None]
  - DRUG INEFFECTIVE [None]
